FAERS Safety Report 7081468-1 (Version None)
Quarter: 2010Q4

REPORT INFORMATION
  Report Type: 
  Country: None (occurrence: None)
  Receive Date: 20101103
  Receipt Date: 20101028
  Transmission Date: 20110411
  Serious: Yes (Life-Threatening, Hospitalization)
  Sender: FDA-Public Use
  Company Number: GXKR2010DE12224

PATIENT
  Age: 68 Year
  Sex: Male
  Weight: 92 kg

DRUGS (5)
  1. ACETYLSALICYLIC ACID SRT [Suspect]
     Indication: STENT PLACEMENT
     Dosage: 100 MG, UNK
     Route: 048
     Dates: start: 20100727, end: 20100916
  2. CLOPIDOGREL BISULFATE [Interacting]
     Indication: STENT PLACEMENT
     Dosage: 75 MG, UNK
     Route: 048
     Dates: start: 20100727, end: 20100916
  3. SIMVASTATIN [Concomitant]
     Route: 048
  4. METOPROLOL [Concomitant]
     Route: 048
  5. TRAMADOL HYDROCHLORIDE [Concomitant]

REACTIONS (1)
  - HAEMORRHAGE INTRACRANIAL [None]
